FAERS Safety Report 4554099-2 (Version None)
Quarter: 2005Q1

REPORT INFORMATION
  Report Type: 
  Country: None (occurrence: None)
  Receive Date: 20050113
  Receipt Date: 20050113
  Transmission Date: 20050727
  Serious: Yes (Death)
  Sender: FDA-Public Use
  Company Number: None

PATIENT
  Sex: Female
  Weight: 9 kg

DRUGS (6)
  1. MELPHALAN [Suspect]
     Indication: NEUROBLASTOMA
     Dosage: SEE IMAGE
     Route: 042
     Dates: start: 20040930, end: 20041002
  2. MELPHALAN [Suspect]
     Indication: NEUROBLASTOMA
     Dosage: SEE IMAGE
     Route: 042
     Dates: start: 20040930, end: 20041003
  3. DIFLUCAN [Concomitant]
  4. CEFEPIME [Concomitant]
  5. PREVACID [Concomitant]
  6. LABETALOL [Concomitant]

REACTIONS (8)
  - CATHETER RELATED INFECTION [None]
  - ENTEROCOCCAL INFECTION [None]
  - INTERSTITIAL LUNG DISEASE [None]
  - MUCOSAL INFLAMMATION [None]
  - PSEUDOMONAS INFECTION [None]
  - PULMONARY FIBROSIS [None]
  - RESPIRATORY DISORDER [None]
  - RESPIRATORY FAILURE [None]
